FAERS Safety Report 4565774-8 (Version None)
Quarter: 2005Q1

REPORT INFORMATION
  Report Type: 
  Country: None (occurrence: None)
  Receive Date: 20050126
  Receipt Date: 20050124
  Transmission Date: 20050727
  Serious: Yes (Other)
  Sender: FDA-Public Use
  Company Number: 163-20785-05010408

PATIENT
  Sex: Female

DRUGS (1)
  1. THALOMID [Suspect]

REACTIONS (1)
  - DRUG EXPOSURE DURING PREGNANCY [None]
